FAERS Safety Report 15555470 (Version 1)
Quarter: 2018Q4

REPORT INFORMATION
  Report Type: Spontaneous
  Country: GB (occurrence: ES)
  Receive Date: 20181026
  Receipt Date: 20181026
  Transmission Date: 20190205
  Serious: Yes (Hospitalization, Other)
  Sender: FDA-Public Use
  Company Number: ES-FRESENIUS KABI-FK201810952

PATIENT
  Age: 61 Year
  Sex: Female

DRUGS (16)
  1. CAPECITABINE. [Suspect]
     Active Substance: CAPECITABINE
     Indication: METASTASES TO LIVER
  2. BEVACIZUMAB. [Suspect]
     Active Substance: BEVACIZUMAB
     Indication: LARGE INTESTINE PERFORATION
     Route: 065
     Dates: start: 20160713, end: 20160713
  3. FOLINIC ACID [Suspect]
     Active Substance: LEUCOVORIN
     Indication: LARGE INTESTINE PERFORATION
     Route: 065
     Dates: start: 20170711, end: 20180425
  4. FOLINIC ACID [Suspect]
     Active Substance: LEUCOVORIN
     Indication: METASTASES TO LIVER
     Route: 065
     Dates: start: 20160713, end: 20160713
  5. FLUOROURACIL. [Suspect]
     Active Substance: FLUOROURACIL
     Indication: LARGE INTESTINE PERFORATION
     Route: 065
     Dates: start: 20170711, end: 20180425
  6. IRINOTECAN (MANUFACTURER UNKNOWN) [Suspect]
     Active Substance: IRINOTECAN
     Indication: LARGE INTESTINE PERFORATION
     Route: 065
     Dates: start: 20170711, end: 20180425
  7. IRINOTECAN (MANUFACTURER UNKNOWN) [Suspect]
     Active Substance: IRINOTECAN
     Indication: METASTASES TO LIVER
  8. BEVACIZUMAB. [Suspect]
     Active Substance: BEVACIZUMAB
     Indication: METASTASES TO LIVER
  9. FLUOROURACIL. [Suspect]
     Active Substance: FLUOROURACIL
     Indication: METASTASES TO LIVER
  10. CAPECITABINE. [Suspect]
     Active Substance: CAPECITABINE
     Indication: LARGE INTESTINE PERFORATION
     Route: 065
  11. OXALIPLATIN (MANUFACTURER UNKNOWN) [Suspect]
     Active Substance: OXALIPLATIN
     Indication: METASTASES TO LIVER
     Route: 065
     Dates: start: 20170125, end: 20170125
  12. ZALTRAP [Suspect]
     Active Substance: ZIV-AFLIBERCEPT
     Indication: LARGE INTESTINE PERFORATION
     Route: 065
     Dates: start: 20170711, end: 20180425
  13. ZALTRAP [Suspect]
     Active Substance: ZIV-AFLIBERCEPT
     Indication: METASTASES TO LIVER
  14. OXALIPLATIN (MANUFACTURER UNKNOWN) [Suspect]
     Active Substance: OXALIPLATIN
     Indication: LARGE INTESTINE PERFORATION
     Route: 065
     Dates: start: 20160713, end: 20160713
  15. OXALIPLATIN (MANUFACTURER UNKNOWN) [Suspect]
     Active Substance: OXALIPLATIN
     Route: 065
     Dates: start: 20141223, end: 20141223
  16. OXALIPLATIN (MANUFACTURER UNKNOWN) [Suspect]
     Active Substance: OXALIPLATIN
     Route: 065

REACTIONS (6)
  - Metastatic neoplasm [Unknown]
  - Hypersensitivity [Unknown]
  - Neurotoxicity [Not Recovered/Not Resolved]
  - Asthenia [Unknown]
  - Metastases to liver [Unknown]
  - Neutropenia [Unknown]
